FAERS Safety Report 24359166 (Version 1)
Quarter: 2024Q3

REPORT INFORMATION
  Report Type: Report from Study
  Country: CN (occurrence: CN)
  Receive Date: 20240924
  Receipt Date: 20240924
  Transmission Date: 20241017
  Serious: No
  Sender: Unknown Manufacturer
  Company Number: CN-ROCHE-3319351

PATIENT
  Sex: Female

DRUGS (2)
  1. PRALSETINIB [Suspect]
     Active Substance: PRALSETINIB
     Indication: Thyroid cancer
     Dates: start: 20220601
  2. PRALSETINIB [Suspect]
     Active Substance: PRALSETINIB

REACTIONS (4)
  - Asthenia [Recovered/Resolved]
  - Face oedema [Recovering/Resolving]
  - Arthralgia [Recovering/Resolving]
  - Facial pain [Recovering/Resolving]

NARRATIVE: CASE EVENT DATE: 20220601
